FAERS Safety Report 6218347-5 (Version None)
Quarter: 2009Q2

REPORT INFORMATION
  Report Type: 
  Country: None (occurrence: None)
  Receive Date: 20090608
  Receipt Date: 20090529
  Transmission Date: 20091009
  Serious: Yes (Hospitalization)
  Sender: FDA-Public Use
  Company Number: A0782807A

PATIENT
  Age: 42 Year
  Sex: Female

DRUGS (3)
  1. TYKERB [Suspect]
     Route: 048
     Dates: start: 20090401
  2. UNSPECIFIED MEDICATION [Concomitant]
     Route: 042
  3. UNKNOWN [Concomitant]

REACTIONS (10)
  - ABASIA [None]
  - BACTERAEMIA [None]
  - BLOOD TEST ABNORMAL [None]
  - CONVULSION [None]
  - DIARRHOEA [None]
  - DIZZINESS [None]
  - DYSPNOEA [None]
  - ESCHERICHIA INFECTION [None]
  - PRURITUS [None]
  - SEPSIS [None]
